FAERS Safety Report 9364170 (Version 1)
Quarter: 2013Q2

REPORT INFORMATION
  Report Type: Spontaneous
  Country: US (occurrence: US)
  Receive Date: 20130624
  Receipt Date: 20130624
  Transmission Date: 20140414
  Serious: Yes (Other)
  Sender: FDA-Public Use
  Company Number: US-PFIZER INC-2013184266

PATIENT
  Age: 88 Year
  Sex: Female
  Weight: 74.83 kg

DRUGS (10)
  1. REVATIO [Suspect]
     Indication: PULMONARY ARTERIAL HYPERTENSION
     Dosage: 20 MG, 3X/DAY
     Route: 048
  2. REVATIO [Suspect]
     Dosage: TWO 20 MG TABLET THREE TIMES A DAY
     Route: 048
  3. VENTAVIS [Concomitant]
     Dosage: UNK
  4. COUMADIN [Concomitant]
     Dosage: UNK
  5. FUROSEMIDE [Concomitant]
     Dosage: UNK
  6. MULTAQ [Concomitant]
     Dosage: UNK
  7. CARDIZEM [Concomitant]
     Dosage: UNK
  8. CITALOPRAM [Concomitant]
     Dosage: UNK
  9. OXYCODONE [Concomitant]
     Indication: PAIN
     Dosage: UNK
  10. XANAX [Concomitant]
     Dosage: UNK

REACTIONS (13)
  - Cardiac disorder [Unknown]
  - Gait disturbance [Unknown]
  - Dyspnoea exertional [Unknown]
  - Decreased activity [Unknown]
  - Off label use [Unknown]
  - Dizziness [Unknown]
  - Hypotension [Unknown]
  - Palpitations [Unknown]
  - Feeling hot [Unknown]
  - Flushing [Unknown]
  - Feeling abnormal [Unknown]
  - Asthenia [Unknown]
  - Malaise [Unknown]
